FAERS Safety Report 9606689 (Version 2)
Quarter: 2013Q4

REPORT INFORMATION
  Report Type: Spontaneous
  Country: US (occurrence: US)
  Receive Date: 20131008
  Receipt Date: 20131008
  Transmission Date: 20140711
  Serious: No
  Sender: FDA-Public Use
  Company Number: US-AMGEN-USASP2013058428

PATIENT
  Age: 80 Year
  Sex: Female
  Weight: 54.42 kg

DRUGS (11)
  1. PROLIA [Suspect]
     Indication: OSTEOPOROSIS POSTMENOPAUSAL
     Dosage: 60 MG, Q6MO
     Route: 058
     Dates: start: 20130104
  2. PROLIA [Suspect]
     Dosage: UNK
     Route: 065
     Dates: start: 20130104
  3. BABY ASPIRIN [Concomitant]
  4. LEVOTHYROXINE [Concomitant]
     Dosage: 88 MUG, 11/2 TAB QWLS
  5. LOSARTAN [Concomitant]
     Dosage: 100 MG, QD
  6. FISH OIL [Concomitant]
  7. MAGNESIUM [Concomitant]
  8. VITAMIN D                          /00107901/ [Concomitant]
  9. CALCIUM [Concomitant]
  10. PRILOSEC                           /00661201/ [Concomitant]
     Dosage: 20 MG, QD
  11. XALATAN [Concomitant]
     Dosage: 0.005 %, AS NECESSARY

REACTIONS (2)
  - Gingivitis [Recovered/Resolved]
  - Salivary gland disorder [Recovered/Resolved]
